FAERS Safety Report 19654064 (Version 1)
Quarter: 2021Q3

REPORT INFORMATION
  Report Type: Spontaneous
  Country: PK (occurrence: PK)
  Receive Date: 20210804
  Receipt Date: 20210804
  Transmission Date: 20211014
  Serious: Yes (Other)
  Sender: FDA-Public Use
  Company Number: PK-SUN PHARMACEUTICAL INDUSTRIES LTD-2021RR-306560

PATIENT
  Age: 40 Year
  Sex: Female
  Weight: 78 kg

DRUGS (15)
  1. METOCLOPRAMIDE. [Suspect]
     Active Substance: METOCLOPRAMIDE
     Indication: TOOTH ABSCESS
  2. XYLOMETAZOLINE [Suspect]
     Active Substance: XYLOMETAZOLINE
     Indication: LUDWIG ANGINA
     Dosage: 1.1000 NASAL VASOCONSTRICTOR TWO SPRAYS
     Route: 065
  3. PARACETAMOL [Suspect]
     Active Substance: ACETAMINOPHEN
     Indication: ANALGESIC THERAPY
     Dosage: UNK
     Route: 065
  4. SODIUM CITRATE. [Suspect]
     Active Substance: SODIUM CITRATE
     Indication: TOOTH ABSCESS
  5. PROPOFOL. [Suspect]
     Active Substance: PROPOFOL
     Indication: MUSCLE DISORDER
     Dosage: UNK
     Route: 042
  6. RANITIDINE. [Suspect]
     Active Substance: RANITIDINE
     Indication: TOOTH ABSCESS
  7. SODIUM CITRATE. [Suspect]
     Active Substance: SODIUM CITRATE
     Indication: LUDWIG ANGINA
     Dosage: UNK
     Route: 065
  8. XYLOMETAZOLINE [Suspect]
     Active Substance: XYLOMETAZOLINE
     Indication: TOOTH ABSCESS
  9. GLYCOPYRROLATE. [Suspect]
     Active Substance: GLYCOPYRROLATE
     Indication: TOOTH ABSCESS
  10. LIGNOCAINE [Suspect]
     Active Substance: LIDOCAINE HYDROCHLORIDE
     Indication: ANAESTHESIA
     Dosage: 3 ML 4%
     Route: 065
  11. RANITIDINE. [Suspect]
     Active Substance: RANITIDINE
     Indication: LUDWIG ANGINA
     Dosage: 50 MG
     Route: 042
  12. GLYCOPYRROLATE. [Suspect]
     Active Substance: GLYCOPYRROLATE
     Indication: LUDWIG ANGINA
     Dosage: 0.2 MG
     Route: 042
  13. METOCLOPRAMIDE. [Suspect]
     Active Substance: METOCLOPRAMIDE
     Indication: LUDWIG ANGINA
     Dosage: 10 MG
     Route: 042
  14. ATRACURIUM [Suspect]
     Active Substance: ATRACURIUM
     Indication: MUSCLE DISORDER
     Dosage: UNK
     Route: 042
  15. MORPHINE [Suspect]
     Active Substance: MORPHINE
     Indication: ANALGESIC THERAPY
     Dosage: UNK
     Route: 065

REACTIONS (1)
  - Exposure during pregnancy [Unknown]
